FAERS Safety Report 11965127 (Version 1)
Quarter: 2016Q1

REPORT INFORMATION
  Report Type: Report from Study
  Country: AL (occurrence: AL)
  Receive Date: 20160127
  Receipt Date: 20160127
  Transmission Date: 20160526
  Serious: Yes (Life-Threatening)
  Sender: FDA-Public Use
  Company Number: AL-APOPHARMA USA, INC.-2016AP005938

PATIENT
  Age: 6 Year
  Sex: Male

DRUGS (1)
  1. DEFERIPRONE [Suspect]
     Active Substance: DEFERIPRONE
     Indication: HAEMOGLOBINOPATHY
     Dosage: 12 ML, TID
     Route: 048
     Dates: start: 20150901, end: 20151229

REACTIONS (1)
  - Hypertransaminasaemia [Recovered/Resolved]

NARRATIVE: CASE EVENT DATE: 20151229
